FAERS Safety Report 8143860-3 (Version None)
Quarter: 2012Q1

REPORT INFORMATION
  Report Type: 
  Country: None (occurrence: None)
  Receive Date: 20120217
  Receipt Date: 20120215
  Transmission Date: 20120608
  Serious: Yes (Other)
  Sender: FDA-Public Use
  Company Number: US-PFIZER INC-2009307763

PATIENT
  Sex: Female
  Weight: 77.098 kg

DRUGS (1)
  1. CHANTIX [Suspect]
     Indication: SMOKING CESSATION THERAPY
     Dosage: UNK
     Dates: start: 20090101, end: 20091001

REACTIONS (6)
  - DEPRESSION [None]
  - ANXIETY [None]
  - ABDOMINAL DISCOMFORT [None]
  - ABNORMAL DREAMS [None]
  - MENTAL DISORDER [None]
  - STRESS [None]
